FAERS Safety Report 4327629-3 (Version None)
Quarter: 2004Q1

REPORT INFORMATION
  Report Type: 
  Country: None (occurrence: None)
  Receive Date: 20040325
  Receipt Date: 20040310
  Transmission Date: 20041129
  Serious: Yes (Hospitalization)
  Sender: FDA-Public Use
  Company Number: S04-FRA-01155-01

PATIENT
  Sex: Female

DRUGS (3)
  1. SEROPRAM (CITALOPRAM HYDROBROMIDE) [Suspect]
     Dosage: 20 MG QD PO
     Route: 048
  2. IMOVANE (ZOPICLONE) [Suspect]
     Dosage: 1 TABLET QD PO
     Route: 048
  3. TOPIRAMATE [Suspect]
     Indication: EPILEPSY

REACTIONS (4)
  - CONFUSIONAL STATE [None]
  - DRUG INTERACTION [None]
  - FALL [None]
  - SOMNOLENCE [None]
